FAERS Safety Report 15408584 (Version 2)
Quarter: 2018Q4

REPORT INFORMATION
  Report Type: Report from Study
  Country: AR (occurrence: AR)
  Receive Date: 20180920
  Receipt Date: 20181005
  Transmission Date: 20190204
  Serious: Yes (Other)
  Sender: FDA-Public Use
  Company Number: PHHY2018AR099890

PATIENT
  Sex: Female

DRUGS (3)
  1. KISQALI [Suspect]
     Active Substance: RIBOCICLIB
     Indication: METASTASES TO BONE
  2. PALBOCICLIB [Suspect]
     Active Substance: PALBOCICLIB
     Indication: PRODUCT USED FOR UNKNOWN INDICATION
     Route: 065
  3. KISQALI [Suspect]
     Active Substance: RIBOCICLIB
     Indication: BREAST CANCER
     Dosage: 600 MG, QD
     Route: 065
     Dates: start: 20180811, end: 20180825

REACTIONS (5)
  - Pruritus generalised [Not Recovered/Not Resolved]
  - Abdominal pain upper [Recovering/Resolving]
  - Hypersensitivity [Not Recovered/Not Resolved]
  - Hepatotoxicity [Recovering/Resolving]
  - Rash [Not Recovered/Not Resolved]
